FAERS Safety Report 20348563 (Version 2)
Quarter: 2022Q1

REPORT INFORMATION
  Report Type: Spontaneous
  Country: BE (occurrence: None)
  Receive Date: 20220119
  Receipt Date: 20220127
  Transmission Date: 20220423
  Serious: Yes (Death)
  Sender: FDA-Public Use
  Company Number: BE-ROCHE-3001579

PATIENT
  Sex: Female

DRUGS (1)
  1. OCREVUS [Suspect]
     Active Substance: OCRELIZUMAB
     Indication: Relapsing multiple sclerosis
     Route: 065
     Dates: start: 201804

REACTIONS (1)
  - COVID-19 [Fatal]
